FAERS Safety Report 4356631-0 (Version None)
Quarter: 2004Q2

REPORT INFORMATION
  Report Type: 
  Country: None (occurrence: None)
  Receive Date: 20040512
  Receipt Date: 20040504
  Transmission Date: 20050107
  Serious: Yes (Hospitalization)
  Sender: FDA-Public Use
  Company Number: US-AMGEN-US075195

PATIENT
  Sex: Female
  Weight: 75.8 kg

DRUGS (3)
  1. NEULASTA [Suspect]
     Indication: CHEMOTHERAPY
     Route: 058
     Dates: start: 20040304, end: 20040331
  2. CYTOXAN [Suspect]
     Dates: start: 20040303, end: 20040330
  3. ADRIAMYCIN PFS [Concomitant]
     Dates: start: 20040303, end: 20040330

REACTIONS (3)
  - ASTHENIA [None]
  - DYSPNOEA [None]
  - PNEUMONITIS [None]
